FAERS Safety Report 8642177 (Version 3)
Quarter: 2013Q1

REPORT INFORMATION
  Report Type: Report from Study
  Country: ES (occurrence: ES)
  Receive Date: 20120628
  Receipt Date: 20130104
  Transmission Date: 20140127
  Serious: Yes (Hospitalization, Other)
  Sender: FDA-Public Use
  Company Number: ES-JNJFOC-20120610141

PATIENT
  Age: 51 Year
  Sex: Male
  Weight: 80 kg

DRUGS (9)
  1. PALIPERIDONE PALMITATE [Suspect]
     Indication: SCHIZOPHRENIA
     Route: 030
     Dates: start: 20120327, end: 20120327
  2. PALIPERIDONE PALMITATE [Suspect]
     Indication: SCHIZOPHRENIA
     Route: 030
     Dates: start: 20111202
  3. OLANZAPINE [Concomitant]
     Indication: INSOMNIA
     Route: 065
     Dates: start: 20120115
  4. RIVOTRIL [Concomitant]
     Indication: INSOMNIA
     Route: 065
     Dates: start: 20120113, end: 20120510
  5. RIVOTRIL [Concomitant]
     Indication: INSOMNIA
     Route: 065
     Dates: start: 201112, end: 201201
  6. RIVOTRIL [Concomitant]
     Indication: INSOMNIA
     Route: 065
     Dates: start: 20120511, end: 20120523
  7. RIVOTRIL [Concomitant]
     Indication: ANXIETY
     Route: 065
     Dates: start: 20120113, end: 20120510
  8. RIVOTRIL [Concomitant]
     Indication: ANXIETY
     Route: 065
     Dates: start: 20120511, end: 20120523
  9. RIVOTRIL [Concomitant]
     Indication: ANXIETY
     Route: 065
     Dates: start: 201112, end: 201201

REACTIONS (1)
  - Schizophrenia [Recovered/Resolved]
